FAERS Safety Report 9806017 (Version 2)
Quarter: 2014Q1

REPORT INFORMATION
  Report Type: Spontaneous
  Country: US (occurrence: US)
  Receive Date: 20140109
  Receipt Date: 20140325
  Transmission Date: 20141002
  Serious: Yes (Hospitalization, Other)
  Sender: FDA-Public Use
  Company Number: US-B.I. PHARMACEUTICALS,INC./RIDGEFIELD-2014-BI-00478BP

PATIENT
  Age: 68 Year
  Sex: Male
  Weight: 134.26 kg

DRUGS (1)
  1. PRADAXA [Suspect]
     Indication: ATRIAL FIBRILLATION
     Route: 065
     Dates: start: 2010

REACTIONS (9)
  - Epistaxis [Unknown]
  - Melaena [Unknown]
  - Anaemia [Unknown]
  - Haemorrhagic stroke [Unknown]
  - Cerebral haemorrhage [Unknown]
  - Myocardial infarction [Unknown]
  - Respiratory failure [Unknown]
  - Ischaemic stroke [Unknown]
  - Gastrointestinal haemorrhage [Unknown]
